FAERS Safety Report 17826216 (Version 3)
Quarter: 2020Q3

REPORT INFORMATION
  Report Type: Spontaneous
  Country: GB (occurrence: GB)
  Receive Date: 20200526
  Receipt Date: 20200717
  Transmission Date: 20201102
  Serious: Yes (Other)
  Sender: FDA-Public Use
  Company Number: GB-TAKEDA-2020TUS023558

PATIENT
  Age: 11 Year
  Sex: Female

DRUGS (2)
  1. ICLUSIG [Suspect]
     Active Substance: PONATINIB
     Indication: HEPATOCELLULAR CARCINOMA
     Dosage: 30 MILLIGRAM, QD
     Route: 065
     Dates: start: 20200108, end: 20200213
  2. ICLUSIG [Suspect]
     Active Substance: PONATINIB
     Indication: TYROSINE KINASE MUTATION

REACTIONS (5)
  - Off label use [Unknown]
  - Drug ineffective for unapproved indication [Unknown]
  - Hepatocellular carcinoma [Unknown]
  - Product administered to patient of inappropriate age [Unknown]
  - Disease progression [Unknown]

NARRATIVE: CASE EVENT DATE: 20200108
